FAERS Safety Report 18088420 (Version 1)
Quarter: 2020Q3

REPORT INFORMATION
  Report Type: Spontaneous
  Country: DE (occurrence: DE)
  Receive Date: 20200729
  Receipt Date: 20200729
  Transmission Date: 20201103
  Serious: Yes (Other)
  Sender: FDA-Public Use
  Company Number: DE-BIOVITRUM-2020DE3845

PATIENT
  Sex: Male

DRUGS (4)
  1. KINERET [Suspect]
     Active Substance: ANAKINRA
     Indication: STILL^S DISEASE
     Dosage: 100 MG/0.67 ML
     Route: 058
  2. SITAGLIPTIN PLUS METFORMIN HYDROCHLORIDE [Concomitant]
     Dosage: SITAGLIPTIN 50 MG+ METFORMIN 1000 MG, TWICE A DAY
     Route: 048
  3. ALLOPURINOL. [Concomitant]
     Active Substance: ALLOPURINOL
     Route: 048
  4. ETORICOXIB. [Concomitant]
     Active Substance: ETORICOXIB

REACTIONS (11)
  - Neutrophilia [Recovering/Resolving]
  - Pyrexia [Recovering/Resolving]
  - Polyarthritis [Recovering/Resolving]
  - Type 2 diabetes mellitus [Recovering/Resolving]
  - Anaphylactic reaction [Recovering/Resolving]
  - Leukocytosis [Recovering/Resolving]
  - Arthrodesis [Recovering/Resolving]
  - Transaminases increased [Recovering/Resolving]
  - Serositis [Recovering/Resolving]
  - Serum ferritin increased [Recovering/Resolving]
  - Oropharyngeal pain [Recovering/Resolving]
